FAERS Safety Report 8200116-8 (Version None)
Quarter: 2012Q1

REPORT INFORMATION
  Report Type: 
  Country: None (occurrence: None)
  Receive Date: 20120306
  Receipt Date: 20120221
  Transmission Date: 20120608
  Serious: Yes (Other)
  Sender: FDA-Public Use
  Company Number: US-1190688

PATIENT
  Age: 73 Year
  Sex: Female

DRUGS (1)
  1. DUREZOL [Suspect]
     Indication: CATARACT OPERATION
     Dosage: (OPHTHALMIC)
     Route: 047
     Dates: start: 20111111, end: 20120201

REACTIONS (1)
  - MACULAR OEDEMA [None]
